FAERS Safety Report 12059557 (Version 1)
Quarter: 2016Q1

REPORT INFORMATION
  Report Type: Spontaneous
  Country: US (occurrence: None)
  Receive Date: 20160209
  Receipt Date: 20160209
  Transmission Date: 20160526
  Serious: Yes (Hospitalization)
  Sender: FDA-Public Use
  Company Number: None

PATIENT
  Age: 7 Year
  Sex: Male
  Weight: 29.7 kg

DRUGS (1)
  1. METHOTREXATE [Suspect]
     Active Substance: METHOTREXATE
     Dates: end: 20150227

REACTIONS (4)
  - Encephalitis [None]
  - Somnolence [None]
  - Headache [None]
  - Platelet count decreased [None]

NARRATIVE: CASE EVENT DATE: 20160203
